FAERS Safety Report 21723439 (Version 1)
Quarter: 2022Q4

REPORT INFORMATION
  Report Type: Spontaneous
  Country: TR (occurrence: None)
  Receive Date: 20221213
  Receipt Date: 20221213
  Transmission Date: 20230112
  Serious: Yes (Hospitalization)
  Sender: FDA-Public Use
  Company Number: 2022A398697

PATIENT
  Age: 15 Year
  Sex: Male

DRUGS (20)
  1. QUETIAPINE [Suspect]
     Active Substance: QUETIAPINE
     Indication: Anxiety
     Route: 048
  2. ESCITALOPRAM [Suspect]
     Active Substance: ESCITALOPRAM OXALATE
     Indication: Anxiety
     Route: 065
  3. AMITRIPTYLINE [Suspect]
     Active Substance: AMITRIPTYLINE
     Indication: Pain
  4. PREGABALIN [Suspect]
     Active Substance: PREGABALIN
     Indication: Pain
  5. GABAPENTIN [Suspect]
     Active Substance: GABAPENTIN
     Indication: Pain
  6. MEMANTINE [Suspect]
     Active Substance: MEMANTINE
     Indication: Pain
  7. SERTRALINE [Suspect]
     Active Substance: SERTRALINE HYDROCHLORIDE
     Indication: Pain
  8. DULOXETINE [Suspect]
     Active Substance: DULOXETINE
     Indication: Pain
  9. IMIPRAMINE [Suspect]
     Active Substance: IMIPRAMINE
     Indication: Pain
  10. VENLAFAXINE [Suspect]
     Active Substance: VENLAFAXINE HYDROCHLORIDE
     Indication: Pain
  11. LAMOTRIGINE [Suspect]
     Active Substance: LAMOTRIGINE
     Indication: Pain
  12. ARIPIPRAZOLE [Suspect]
     Active Substance: ARIPIPRAZOLE
     Indication: Pain
  13. PAROXETINE [Suspect]
     Active Substance: PAROXETINE
     Indication: Pain
  14. LORAZEPAM [Suspect]
     Active Substance: LORAZEPAM
     Indication: Pain
  15. OLANZAPINE [Suspect]
     Active Substance: OLANZAPINE
     Indication: Pain
  16. MIRTAZAPINE [Suspect]
     Active Substance: MIRTAZAPINE
     Indication: Pain
  17. RISPERIDONE [Suspect]
     Active Substance: RISPERIDONE
     Indication: Pain
  18. BUPROPION [Suspect]
     Active Substance: BUPROPION
     Indication: Pain
  19. HALOPERIDOL [Suspect]
     Active Substance: HALOPERIDOL
     Indication: Pain
  20. FLUOXETINE [Suspect]
     Active Substance: FLUOXETINE HYDROCHLORIDE
     Indication: Anxiety disorder

REACTIONS (2)
  - Somatic symptom disorder [Unknown]
  - Intentional product misuse [Unknown]
